FAERS Safety Report 14433169 (Version 1)
Quarter: 2018Q1

REPORT INFORMATION
  Report Type: Spontaneous
  Country: US (occurrence: US)
  Receive Date: 20180124
  Receipt Date: 20180124
  Transmission Date: 20180509
  Serious: No
  Sender: FDA-Public Use
  Company Number: US-PCCINC-T201606645

PATIENT

DRUGS (3)
  1. GABLOFEN [Suspect]
     Active Substance: BACLOFEN
     Indication: MULTIPLE SCLEROSIS
     Dosage: 134.5 ?G, QD
     Route: 037
  2. GABLOFEN [Suspect]
     Active Substance: BACLOFEN
     Indication: MUSCLE SPASTICITY
     Dosage: 178.9 ?G, QD  SINCE PUMP REVERSION
     Route: 037
     Dates: start: 20161103
  3. LIORESAL [Suspect]
     Active Substance: BACLOFEN
     Dosage: 161 ?G, QD
     Route: 037

REACTIONS (5)
  - Limb discomfort [Recovering/Resolving]
  - Movement disorder [Recovering/Resolving]
  - Muscle spasticity [Recovering/Resolving]
  - Muscular weakness [Recovering/Resolving]
  - Device issue [None]
